FAERS Safety Report 6073450-8 (Version None)
Quarter: 2009Q1

REPORT INFORMATION
  Report Type: 
  Country: None (occurrence: None)
  Receive Date: 20090211
  Receipt Date: 20090204
  Transmission Date: 20090719
  Serious: Yes (Other)
  Sender: FDA-Public Use
  Company Number: GB-TEVA-184981ISR

PATIENT
  Age: 63 Year
  Sex: Female

DRUGS (1)
  1. NIFEDIPINE [Suspect]

REACTIONS (3)
  - HYPERKERATOSIS [None]
  - OEDEMA PERIPHERAL [None]
  - PURPURA [None]
